FAERS Safety Report 24234996 (Version 1)
Quarter: 2024Q3

REPORT INFORMATION
  Report Type: Spontaneous
  Country: US (occurrence: None)
  Receive Date: 20240821
  Receipt Date: 20240821
  Transmission Date: 20241017
  Serious: Yes (Hospitalization)
  Sender: Public
  Company Number: None

PATIENT
  Age: 29 Month
  Sex: Female
  Weight: 18.5 kg

DRUGS (5)
  1. CALASPARGASE PEGOL-MKNL [Suspect]
     Active Substance: CALASPARGASE PEGOL-MKNL
  2. CYTARABINE [Concomitant]
  3. DEXAMETHASONE [Concomitant]
     Active Substance: DEXAMETHASONE
  4. METHOTREXATE [Concomitant]
  5. VINCRISTINE SULFATE [Concomitant]

REACTIONS (15)
  - Fatigue [None]
  - Malaise [None]
  - Rash [None]
  - Candida test positive [None]
  - Klebsiella test positive [None]
  - Bacteroides test positive [None]
  - Abscess [None]
  - Endocarditis [None]
  - Blood pressure increased [None]
  - Haematoma [None]
  - Extradural abscess [None]
  - Haematoma infection [None]
  - Spinal cord abscess [None]
  - Splenic lesion [None]
  - Renal disorder [None]

NARRATIVE: CASE EVENT DATE: 20240723
